FAERS Safety Report 22953851 (Version 4)
Quarter: 2023Q4

REPORT INFORMATION
  Report Type: Spontaneous
  Country: US (occurrence: US)
  Receive Date: 20230918
  Receipt Date: 20231102
  Transmission Date: 20240109
  Serious: Yes (Hospitalization, Other)
  Sender: FDA-Public Use
  Company Number: US-PFIZER INC-202300297582

PATIENT
  Age: 41 Year
  Sex: Female
  Weight: 92.99 kg

DRUGS (5)
  1. DEPO-PROVERA [Suspect]
     Active Substance: MEDROXYPROGESTERONE ACETATE
     Indication: Contraception
     Dosage: EVERY 12 WEEKS, INJECTION IN THE BUTT
     Dates: start: 20221115, end: 20230207
  2. DEPO-PROVERA [Suspect]
     Active Substance: MEDROXYPROGESTERONE ACETATE
     Dosage: UNK (2ND SHOT, THE 2ND 3 MONTHS LATER)
     Dates: start: 2023
  3. DEPO-PROVERA [Suspect]
     Active Substance: MEDROXYPROGESTERONE ACETATE
     Dosage: 150 MG / 12 WEEKS
     Dates: start: 20230207
  4. TOPAMAX [Concomitant]
     Active Substance: TOPIRAMATE
     Indication: Epilepsy
     Dosage: 100 MG, 2X/DAY
     Dates: start: 1999
  5. BRIVIACT [Concomitant]
     Active Substance: BRIVARACETAM
     Indication: Epilepsy
     Dosage: 100 MG, 2X/DAY

REACTIONS (3)
  - Vaginal haemorrhage [Recovered/Resolved]
  - Polyp [Unknown]
  - Uterine leiomyoma [Unknown]

NARRATIVE: CASE EVENT DATE: 20221101
